FAERS Safety Report 11695350 (Version 1)
Quarter: 2015Q4

REPORT INFORMATION
  Report Type: Spontaneous
  Country: CA (occurrence: CA)
  Receive Date: 20151103
  Receipt Date: 20151103
  Transmission Date: 20160304
  Serious: Yes (Other)
  Sender: FDA-Public Use
  Company Number: CA-ROCHE-1653458

PATIENT
  Sex: Female

DRUGS (10)
  1. CLONAZEPAM. [Concomitant]
     Active Substance: CLONAZEPAM
     Route: 065
  2. SEEBRI [Suspect]
     Active Substance: GLYCOPYRRONIUM
     Indication: ASTHMA
     Dosage: 1 PUFF DAILY
     Route: 055
  3. SALBUTAMOL [Concomitant]
     Active Substance: ALBUTEROL
  4. TECTA [Concomitant]
     Active Substance: PANTOPRAZOLE MAGNESIUM
  5. XOLAIR [Suspect]
     Active Substance: OMALIZUMAB
     Indication: ASTHMA
     Route: 058
     Dates: start: 20150717
  6. ZENHALE [Concomitant]
     Active Substance: FORMOTEROL FUMARATE\MOMETASONE FUROATE
  7. DOMPERIDONE [Concomitant]
     Active Substance: DOMPERIDONE
  8. VENTOLIN [Concomitant]
     Active Substance: ALBUTEROL SULFATE
  9. CIPRALEX [Concomitant]
     Active Substance: ESCITALOPRAM OXALATE
  10. OMNARIS [Concomitant]
     Active Substance: CICLESONIDE

REACTIONS (16)
  - Malaise [Unknown]
  - Hiatus hernia [Unknown]
  - Bronchitis [Unknown]
  - Allergy to animal [Unknown]
  - Allergy to plants [Unknown]
  - Dyspnoea [Unknown]
  - Viral infection [Unknown]
  - Gastrooesophageal reflux disease [Unknown]
  - Blood immunoglobulin E increased [Unknown]
  - Off label use [Unknown]
  - Seasonal allergy [Unknown]
  - House dust allergy [Unknown]
  - Wheezing [Unknown]
  - Asthma [Unknown]
  - Aspiration [Unknown]
  - Pneumonia aspiration [Unknown]
